FAERS Safety Report 7247310-0 (Version None)
Quarter: 2011Q1

REPORT INFORMATION
  Report Type: 
  Country: None (occurrence: None)
  Receive Date: 20110127
  Receipt Date: 20110119
  Transmission Date: 20110831
  Serious: Yes (Other)
  Sender: FDA-Public Use
  Company Number: B0693560A

PATIENT
  Age: 10 Year
  Sex: Female

DRUGS (3)
  1. SERETIDE [Suspect]
     Route: 055
     Dates: start: 20100101
  2. SERETIDE [Suspect]
     Route: 055
     Dates: start: 20100101
  3. SERETIDE [Suspect]
     Indication: ASTHMA
     Dosage: 500MCG PER DAY
     Route: 055
     Dates: start: 20110111

REACTIONS (2)
  - ASTHMA [None]
  - OVERDOSE [None]
